FAERS Safety Report 15691708 (Version 1)
Quarter: 2018Q4

REPORT INFORMATION
  Report Type: Report from Study
  Country: US (occurrence: US)
  Receive Date: 20181205
  Receipt Date: 20181205
  Transmission Date: 20190205
  Serious: Yes (Hospitalization, Other)
  Sender: FDA-Public Use
  Company Number: US-MYLANLABS-2018M1090684

PATIENT
  Age: 72 Year
  Sex: Female

DRUGS (17)
  1. SINEMET [Concomitant]
     Active Substance: CARBIDOPA\LEVODOPA
     Indication: SLEEP DISORDER THERAPY
  2. LINZESS [Concomitant]
     Active Substance: LINACLOTIDE
     Indication: CONSTIPATION PROPHYLAXIS
     Dosage: 1 DOSAGE FORM (1 TABLET)
     Route: 048
  3. DUOPA [Suspect]
     Active Substance: CARBIDOPA\LEVODOPA
     Indication: PARKINSON^S DISEASE
     Dosage: REDUCE HER DUOP DOSE FROM TWO CASSETTES IN ONE DAY TO ONE CASSETTE IN ONE DAY
     Dates: start: 201009
  4. CLONAZEPAM. [Concomitant]
     Active Substance: CLONAZEPAM
     Indication: SLEEP DISORDER THERAPY
     Dosage: 2 DOSAGE FORM (2 TABLET)
     Route: 048
  5. PRESERVISION [Concomitant]
     Active Substance: MINERALS\VITAMINS
     Indication: PRODUCT USED FOR UNKNOWN INDICATION
     Dosage: 2 DOSAGE FORM (2 CAPSULE)
     Route: 048
  6. VITAMIN D3 [Concomitant]
     Active Substance: CHOLECALCIFEROL
     Indication: PRODUCT USED FOR UNKNOWN INDICATION
     Dosage: 1 DOSAGE FORM (1 CAPSULE)
     Route: 048
  7. CARBIDOPA, LEVODOPA AND ENTACAPONE [Concomitant]
     Active Substance: CARBIDOPA\ENTACAPONE\LEVODOPA
     Indication: PRODUCT USED FOR UNKNOWN INDICATION
     Dosage: 2 DOSAGE FORM (2 TABLET)
     Route: 048
  8. CALTRATE                           /00944201/ [Concomitant]
     Active Substance: CALCIUM CARBONATE\CHOLECALCIFEROL
     Indication: SPINAL OPERATION
  9. MIRALAX [Concomitant]
     Active Substance: POLYETHYLENE GLYCOL 3350
     Indication: CONSTIPATION PROPHYLAXIS
  10. SELEGILINE [Suspect]
     Active Substance: SELEGILINE
     Dosage: UNK
     Route: 065
     Dates: start: 201806, end: 20180904
  11. GABAPENTIN. [Suspect]
     Active Substance: GABAPENTIN
     Indication: PRODUCT USED FOR UNKNOWN INDICATION
     Dosage: 200 MILLIGRAM, TID
  12. GABAPENTIN. [Suspect]
     Active Substance: GABAPENTIN
     Dosage: 100 MILLIGRAM
  13. FOLGARD [Concomitant]
     Indication: PRODUCT USED FOR UNKNOWN INDICATION
     Dosage: 1 DOSAGE FORM (1 TABLET)
     Route: 048
  14. MIRAPEX [Concomitant]
     Active Substance: PRAMIPEXOLE DIHYDROCHLORIDE
     Indication: SLEEP DISORDER THERAPY
     Dosage: 0.25 MILLIGRAM
     Route: 048
  15. RANITIDINE. [Concomitant]
     Active Substance: RANITIDINE
     Indication: PRODUCT USED FOR UNKNOWN INDICATION
     Dosage: 1 DOSAGE FORM (1 TABLET)
     Route: 048
  16. AREDSAN [Concomitant]
     Indication: SUPPLEMENTATION THERAPY
  17. VITAMIN D [Concomitant]
     Active Substance: CHOLECALCIFEROL
     Indication: SUPPLEMENTATION THERAPY

REACTIONS (10)
  - Urinary tract infection [Recovered/Resolved]
  - Stoma site pain [Not Recovered/Not Resolved]
  - Hallucination [Recovered/Resolved]
  - Intervertebral disc protrusion [Recovering/Resolving]
  - Dyskinesia [Recovering/Resolving]
  - Pain in extremity [Recovering/Resolving]
  - Oculogyric crisis [Recovered/Resolved]
  - Device occlusion [Unknown]
  - Stoma site erythema [Not Recovered/Not Resolved]
  - Stoma site discharge [Not Recovered/Not Resolved]

NARRATIVE: CASE EVENT DATE: 2018
